FAERS Safety Report 9745012 (Version 1)
Quarter: 2013Q4

REPORT INFORMATION
  Report Type: Report from Study
  Country: MX (occurrence: MX)
  Receive Date: 20131211
  Receipt Date: 20131211
  Transmission Date: 20140711
  Serious: Yes (Death)
  Sender: FDA-Public Use
  Company Number: MX-ROCHE-1317302

PATIENT
  Sex: Male

DRUGS (2)
  1. LUCENTIS [Suspect]
     Indication: PRODUCT USED FOR UNKNOWN INDICATION
     Dosage: DOSE:0.5 MG/0.05 ML
     Route: 050
     Dates: start: 201112
  2. LUCENTIS [Suspect]
     Dosage: DOSE:0.5 MG/0.05 ML
     Route: 050
     Dates: start: 20130922

REACTIONS (1)
  - Death [Fatal]
